FAERS Safety Report 18906392 (Version 2)
Quarter: 2021Q1

REPORT INFORMATION
  Report Type: Report from Study
  Country: JP (occurrence: JP)
  Receive Date: 20210217
  Receipt Date: 20210304
  Transmission Date: 20210420
  Serious: Yes (Death)
  Sender: FDA-Public Use
  Company Number: JP-DSJP-DSJ-2019-125349

PATIENT
  Age: 81 Year
  Sex: Male
  Weight: 48 kg

DRUGS (51)
  1. EPHEDRINE HYDROCHLORIDE [Concomitant]
     Active Substance: EPHEDRINE HYDROCHLORIDE
     Indication: BLOOD PRESSURE DECREASED
     Dosage: 20 MG, SINGLE
     Route: 042
     Dates: start: 20190322, end: 20190322
  2. EPLERENONE. [Concomitant]
     Active Substance: EPLERENONE
     Indication: CARDIAC FAILURE CHRONIC
     Dosage: 25 MG, QD
     Route: 048
     Dates: start: 20190117
  3. FUROSEMIDE. [Concomitant]
     Active Substance: FUROSEMIDE
     Indication: CARDIAC FAILURE CHRONIC
     Dosage: 20 MG, QD
     Route: 048
     Dates: start: 20190117
  4. PHENYLEPHRINE HYDROCHLORIDE. [Concomitant]
     Active Substance: PHENYLEPHRINE HYDROCHLORIDE
     Indication: BLOOD PRESSURE INCREASED
     Dosage: 0.35 MG, SINGLE
     Route: 042
     Dates: start: 20190322, end: 20190322
  5. PROTAMINE SULFATE. [Concomitant]
     Active Substance: PROTAMINE SULFATE
     Indication: HYPERCOAGULATION
     Dosage: 20 MG, SINGLE
     Route: 042
     Dates: start: 20190322, end: 20190322
  6. REMIFENTANIL HYDROCHLORIDE. [Concomitant]
     Active Substance: REMIFENTANIL HYDROCHLORIDE
     Indication: PAIN
     Dosage: 569.9 UG, SINGLE
     Route: 042
     Dates: start: 20190614, end: 20190614
  7. ALBUMIN [Concomitant]
     Active Substance: ALBUMIN HUMAN
     Indication: OEDEMA
     Dosage: 250 ML, SINGLE
     Route: 042
     Dates: start: 20190322, end: 20190322
  8. LIDOCAINE HYDROCHLORIDE. [Concomitant]
     Active Substance: LIDOCAINE HYDROCHLORIDE
     Indication: PAIN
     Dosage: 20 ML, SINGLE
     Route: 061
     Dates: start: 20190322, end: 20190322
  9. MIDAZOLAM. [Concomitant]
     Active Substance: MIDAZOLAM
     Indication: PAIN
     Dosage: 10 MG, SINGLE
     Route: 042
     Dates: start: 20190614, end: 20190614
  10. DU?176B [Suspect]
     Active Substance: EDOXABAN TOSYLATE
     Indication: ATRIAL FIBRILLATION
     Dosage: 30 MG, QD
     Route: 065
     Dates: start: 20190327, end: 20190508
  11. APIXABAN [Concomitant]
     Active Substance: APIXABAN
     Indication: ATRIAL FIBRILLATION
     Dosage: 5 MG, BID
     Route: 048
     Dates: start: 201801, end: 20190316
  12. BILASTINE [Concomitant]
     Active Substance: BILASTINE
     Indication: RHINITIS ALLERGIC
     Dosage: 20 MG, QD
     Route: 048
     Dates: start: 2019
  13. HEPARIN SODIUM. [Concomitant]
     Active Substance: HEPARIN SODIUM
     Indication: ANTICOAGULANT THERAPY
     Dosage: 50 IU, QD
     Route: 042
     Dates: start: 20190323, end: 20190324
  14. FENTANYL                           /00174602/ [Concomitant]
     Active Substance: FENTANYL
     Indication: PAIN
     Dosage: 0.3 MG, SINGLE
     Route: 042
     Dates: start: 20190614, end: 20190614
  15. SODIUM BICARBONATE ANHYDROUS MONOBASIC SODIUM PHOSPHATE [Concomitant]
     Indication: CONSTIPATION
     Dosage: 1 DF, SINGLE
     Route: 054
     Dates: start: 20190322, end: 20190322
  16. ASPIRIN                            /00002701/ [Concomitant]
     Active Substance: ASPIRIN
     Indication: THROMBOSIS PROPHYLAXIS
     Dosage: 100 MG, QD
     Route: 048
     Dates: start: 20190321, end: 20190327
  17. ENALAPRIL MALEATE. [Concomitant]
     Active Substance: ENALAPRIL MALEATE
     Indication: CARDIAC FAILURE CHRONIC
     Dosage: 2.5 MG, QD
     Route: 048
     Dates: start: 20190117
  18. NICARDIPINE HYDROCHLORIDE. [Concomitant]
     Active Substance: NICARDIPINE HYDROCHLORIDE
     Indication: BLOOD PRESSURE INCREASED
     Dosage: 6.6 MG, SINGLE
     Route: 042
     Dates: start: 20190322, end: 20190322
  19. PROPOFOL. [Concomitant]
     Active Substance: PROPOFOL
     Indication: PAIN
     Dosage: 311.6 MG, SINGLE
     Route: 042
     Dates: start: 20190614, end: 20190614
  20. REMIFENTANIL HYDROCHLORIDE. [Concomitant]
     Active Substance: REMIFENTANIL HYDROCHLORIDE
     Indication: ANAESTHESIA
     Dosage: 424.08 MG, SINGLE
     Route: 042
     Dates: start: 20190322, end: 20190322
  21. ROCURONIUM BROMIDE. [Concomitant]
     Active Substance: ROCURONIUM BROMIDE
     Indication: PAIN
     Dosage: 239.87 MG, SINGLE
     Route: 042
     Dates: start: 20190614, end: 20190614
  22. SILODOSIN. [Concomitant]
     Active Substance: SILODOSIN
     Indication: CARDIAC FAILURE CHRONIC
     Dosage: 8 MG, BID
     Route: 048
     Dates: start: 20190327
  23. SUGAMMADEX SODIUM [Concomitant]
     Active Substance: SUGAMMADEX SODIUM
     Indication: ANAESTHESIA
     Dosage: 200 MG, SINGLE
     Route: 042
     Dates: start: 20190322, end: 20190322
  24. HYDROXYETHYL STARCH [Concomitant]
     Active Substance: HETASTARCH
     Indication: DEHYDRATION
     Dosage: 6500 ML, SINGLE
     Route: 042
     Dates: start: 20190614, end: 20190614
  25. INSULIN [Concomitant]
     Active Substance: INSULIN NOS
     Indication: BLOOD GLUCOSE INCREASED
     Dosage: 100 IU, BID
     Route: 058
     Dates: start: 20190322, end: 20190323
  26. RINGER ACETATE [Concomitant]
     Active Substance: CALCIUM CHLORIDE\POTASSIUM CHLORIDE\SODIUM ACETATE
     Indication: DEHYDRATION
     Dosage: 500 ML, SINGLE
     Route: 031
     Dates: start: 20190529, end: 20190529
  27. DU?176B [Suspect]
     Active Substance: EDOXABAN TOSYLATE
     Dosage: 30 MG, QD
     Route: 065
     Dates: start: 20190512, end: 20190613
  28. ACETAMINOPHEN. [Concomitant]
     Active Substance: ACETAMINOPHEN
     Indication: INFLAMMATION
     Dosage: 800 MG, SINGLE
     Route: 042
     Dates: start: 20190322, end: 20190322
  29. HEPARIN SODIUM. [Concomitant]
     Active Substance: HEPARIN SODIUM
     Indication: ANTICOAGULANT THERAPY
     Dosage: 3000 IU, SINGLE
     Route: 042
     Dates: start: 20190322, end: 20190322
  30. NAFTOPIDIL [Concomitant]
     Active Substance: NAFTOPIDIL
     Indication: CARDIAC FAILURE CHRONIC
     Dosage: 25 MG, QD
     Route: 048
     Dates: start: 20190117
  31. SEVOFLURANE. [Concomitant]
     Active Substance: SEVOFLURANE
     Indication: PAIN
     Dosage: 14.89 ML, SINGLE
     Route: 055
     Dates: start: 20190614, end: 20190614
  32. CARBOCISTEINE [Concomitant]
     Active Substance: CARBOCYSTEINE
     Indication: PRODUCTIVE COUGH
     Dosage: 750 MG, TID
     Route: 048
     Dates: start: 20190517, end: 20190622
  33. ALLOPURINOL. [Concomitant]
     Active Substance: ALLOPURINOL
     Indication: HYPERURICAEMIA
     Dosage: 100 MG, QD
     Route: 048
     Dates: start: 2019
  34. BROTIZOLAM [Concomitant]
     Active Substance: BROTIZOLAM
     Indication: INSOMNIA
     Dosage: 0.25 MG, QD
     Route: 048
     Dates: start: 2019
  35. GLUCOSE [Concomitant]
     Active Substance: DEXTROSE
     Indication: DEHYDRATION
     Dosage: 100 ML, SINGLE
     Route: 042
     Dates: start: 20190614, end: 20190614
  36. HEPARIN SODIUM. [Concomitant]
     Active Substance: HEPARIN SODIUM
     Indication: THROMBOSIS
     Dosage: 10 DF, SINGLE
     Route: 042
     Dates: start: 20190322, end: 20190322
  37. LECICARBON                         /01589001/ [Concomitant]
     Indication: DEFAECATION URGENCY
     Dosage: 1 DF, SINGLE
     Route: 054
     Dates: start: 20190321, end: 20190321
  38. MAGNESIUM OXIDE. [Concomitant]
     Active Substance: MAGNESIUM OXIDE
     Indication: CONSTIPATION
     Dosage: 500 MG, BID
     Route: 048
     Dates: start: 2019
  39. NORADRENALINE                      /00127501/ [Concomitant]
     Active Substance: NOREPINEPHRINE
     Indication: BLOOD PRESSURE INCREASED
     Dosage: 0.33 MG, SINGLE
     Route: 042
     Dates: start: 20190322, end: 20190322
  40. ROCURONIUM BROMIDE. [Concomitant]
     Active Substance: ROCURONIUM BROMIDE
     Indication: ANAESTHESIA
     Dosage: 70 MG, SINGLE
     Route: 042
     Dates: start: 20190322, end: 20190322
  41. SENNOSIDE                          /00571901/ [Concomitant]
     Active Substance: SENNOSIDES A AND B
     Indication: CONSTIPATION
     Dosage: 24 MG, QD
     Route: 048
     Dates: start: 2019
  42. SEVOFLURANE. [Concomitant]
     Active Substance: SEVOFLURANE
     Indication: ANAESTHESIA
     Dosage: 19.5 ML, SINGLE
     Route: 055
     Dates: start: 20190322, end: 20190322
  43. SULPIRIDE [Concomitant]
     Active Substance: SULPIRIDE
     Indication: INSOMNIA
     Dosage: 100 MG, BID
     Route: 048
     Dates: start: 20190313
  44. BICANATE [Concomitant]
     Indication: INFUSION
     Dosage: 600 ML, SINGLE
     Route: 042
     Dates: start: 20190322, end: 20190322
  45. CLINDAMYCIN PHOSPHATE. [Concomitant]
     Active Substance: CLINDAMYCIN PHOSPHATE
     Indication: INFECTION PROPHYLAXIS
     Dosage: 600 MG, QD
     Route: 042
     Dates: start: 20190322, end: 20190324
  46. IOPAMIDOL [Concomitant]
     Active Substance: IOPAMIDOL
     Indication: SCAN WITH CONTRAST
     Dosage: 30 ML, SINGLE
     Route: 042
     Dates: start: 20190322, end: 20190322
  47. IOPAMIDOL [Concomitant]
     Active Substance: IOPAMIDOL
     Indication: COMPUTERISED TOMOGRAM
     Dosage: 20 ML, SINGLE
     Route: 042
     Dates: start: 20190322, end: 20190322
  48. PROPOFOL. [Concomitant]
     Active Substance: PROPOFOL
     Indication: ANAESTHESIA
     Dosage: 157.68 MG, SINGLE
     Route: 042
     Dates: start: 20190322, end: 20190322
  49. TOLVAPTAN [Concomitant]
     Active Substance: TOLVAPTAN
     Indication: CARDIAC FAILURE CHRONIC
     Dosage: 7.5 MG, QD
     Route: 048
     Dates: start: 20190117
  50. FEXOFENADINE HYDROCHLORIDE. [Concomitant]
     Active Substance: FEXOFENADINE HYDROCHLORIDE
     Indication: ANTIALLERGIC THERAPY
     Dosage: 120 MG, BID
     Route: 060
     Dates: start: 20190327
  51. SALINE                             /00075401/ [Concomitant]
     Active Substance: SODIUM CHLORIDE
     Indication: DEHYDRATION
     Dosage: 187.67 ML, SINGLE
     Route: 042
     Dates: start: 20190614, end: 20190614

REACTIONS (1)
  - Aortic dissection [Fatal]

NARRATIVE: CASE EVENT DATE: 20190614
